FAERS Safety Report 24338646 (Version 1)
Quarter: 2024Q3

REPORT INFORMATION
  Report Type: Spontaneous
  Country: FR (occurrence: FR)
  Receive Date: 20240919
  Receipt Date: 20240919
  Transmission Date: 20241017
  Serious: Yes (Hospitalization, Other)
  Sender: AIRGAS
  Company Number: FR-AFSSAPS-AVTO2024000128

PATIENT
  Age: 16 Year
  Sex: Female

DRUGS (2)
  1. NITROUS OXIDE [Suspect]
     Active Substance: NITROUS OXIDE
     Indication: Product used for unknown indication
     Dates: start: 20240806, end: 20240806
  2. LYRICA [Suspect]
     Active Substance: PREGABALIN
     Dates: start: 20240806, end: 20240806

REACTIONS (2)
  - Altered state of consciousness [Recovered/Resolved]
  - Suicidal ideation [Recovering/Resolving]

NARRATIVE: CASE EVENT DATE: 20240806
